FAERS Safety Report 9563864 (Version 1)
Quarter: 2013Q3

REPORT INFORMATION
  Report Type: Spontaneous
  Country: None (occurrence: None)
  Receive Date: 20130926
  Receipt Date: 20130926
  Transmission Date: 20140515
  Serious: No
  Sender: FDA-Public Use
  Company Number: None

PATIENT
  Age: 35 Year
  Sex: Female
  Weight: 59 kg

DRUGS (1)
  1. Z PACK [Suspect]
     Indication: PHARYNGITIS STREPTOCOCCAL
     Dates: start: 20121230, end: 20121231

REACTIONS (1)
  - Hypersensitivity [None]
